FAERS Safety Report 17313766 (Version 4)
Quarter: 2021Q2

REPORT INFORMATION
  Report Type: Spontaneous
  Country: US (occurrence: US)
  Receive Date: 20200124
  Receipt Date: 20210622
  Transmission Date: 20210716
  Serious: Yes (Other)
  Sender: FDA-Public Use
  Company Number: US-GILEAD-2020-0448029

PATIENT
  Age: 44 Year
  Sex: Male
  Weight: 230 kg

DRUGS (57)
  1. BIKTARVY [Concomitant]
     Active Substance: BICTEGRAVIR SODIUM\EMTRICITABINE\TENOFOVIR ALAFENAMIDE FUMARATE
  2. OXYCODONE [Concomitant]
     Active Substance: OXYCODONE
  3. METFORMIN [Concomitant]
     Active Substance: METFORMIN HYDROCHLORIDE
  4. NORVIR [Concomitant]
     Active Substance: RITONAVIR
  5. LAMOTRIGINE. [Concomitant]
     Active Substance: LAMOTRIGINE
  6. MIRTAZAPINE. [Concomitant]
     Active Substance: MIRTAZAPINE
  7. HYDROXYZINE HCL [Concomitant]
     Active Substance: HYDROXYZINE HYDROCHLORIDE
  8. KADIAN [Concomitant]
     Active Substance: MORPHINE SULFATE
  9. ACETAMINOPHEN. [Concomitant]
     Active Substance: ACETAMINOPHEN
  10. CONTOUR [ESOMEPRAZOLE SODIUM] [Concomitant]
  11. MICROLET [ETHINYLESTRADIOL;GESTODENE] [Concomitant]
  12. LORAZEPAM. [Concomitant]
     Active Substance: LORAZEPAM
  13. CRIXIVAN [Concomitant]
     Active Substance: INDINAVIR SULFATE
  14. FERROUS SULFATE. [Concomitant]
     Active Substance: FERROUS SULFATE
  15. OMEPRAZOLE. [Concomitant]
     Active Substance: OMEPRAZOLE
  16. SUMATRIPTAN. [Concomitant]
     Active Substance: SUMATRIPTAN
  17. GENERLAC [Concomitant]
     Active Substance: LACTULOSE
  18. PENICILLIN NOS [Concomitant]
     Active Substance: PENICILLIN
  19. RISPERIDONE. [Concomitant]
     Active Substance: RISPERIDONE
  20. DAPSONE. [Concomitant]
     Active Substance: DAPSONE
  21. ATRIPLA [Suspect]
     Active Substance: EFAVIRENZ\EMTRICITABINE\TENOFOVIR DISOPROXIL FUMARATE
     Indication: HIV INFECTION
     Dosage: UNK
     Route: 048
     Dates: start: 2006, end: 201110
  22. CLINDAMYCIN. [Concomitant]
     Active Substance: CLINDAMYCIN
  23. POLYETHYLENE GLYCOL [MACROGOL] [Concomitant]
     Active Substance: POLYETHYLENE GLYCOLS
  24. NORTRIPTYLINE [Concomitant]
     Active Substance: NORTRIPTYLINE
  25. TEMAZEPAM. [Concomitant]
     Active Substance: TEMAZEPAM
  26. SPIRIVA [Concomitant]
     Active Substance: TIOTROPIUM BROMIDE MONOHYDRATE
  27. PANTOPRAZOLE [Concomitant]
     Active Substance: PANTOPRAZOLE
  28. RETROVIR [Concomitant]
     Active Substance: ZIDOVUDINE
  29. REYATAZ [Concomitant]
     Active Substance: ATAZANAVIR SULFATE
  30. STRIBILD [Suspect]
     Active Substance: COBICISTAT\ELVITEGRAVIR\EMTRICITABINE\TENOFOVIR DISOPROXIL FUMARATE
     Indication: HIV INFECTION
     Dosage: 1 DOSAGE FORM, QD
     Route: 048
     Dates: start: 201310, end: 2018
  31. GENVOYA [Concomitant]
     Active Substance: COBICISTAT\ELVITEGRAVIR\EMTRICITABINE\TENOFOVIR ALAFENAMIDE FUMARATE
  32. NICODERM CQ [Concomitant]
     Active Substance: NICOTINE
  33. CYMBALTA [Concomitant]
     Active Substance: DULOXETINE HYDROCHLORIDE
  34. VENTOLIN HFA [Concomitant]
     Active Substance: ALBUTEROL SULFATE
  35. VITAMIN D3 [Concomitant]
     Active Substance: CHOLECALCIFEROL
  36. INTERFERON ALFA NOS [Concomitant]
     Active Substance: INTERFERON ALFA-2A OR INTERFERON ALFA-2B
  37. STRIBILD [Suspect]
     Active Substance: COBICISTAT\ELVITEGRAVIR\EMTRICITABINE\TENOFOVIR DISOPROXIL FUMARATE
     Dosage: UNK
     Route: 065
     Dates: start: 201110, end: 2018
  38. MORPHINE SULPHATE [Concomitant]
     Active Substance: MORPHINE SULFATE
  39. DULOXETINE. [Concomitant]
     Active Substance: DULOXETINE
  40. SPIRONOLACTONE. [Concomitant]
     Active Substance: SPIRONOLACTONE
  41. PREZISTA [Concomitant]
     Active Substance: DARUNAVIR ETHANOLATE
  42. AMOXICILLIN. [Concomitant]
     Active Substance: AMOXICILLIN
  43. ALDACTONE [Suspect]
     Active Substance: SPIRONOLACTONE
  44. TRUVADA [Suspect]
     Active Substance: EMTRICITABINE\TENOFOVIR DISOPROXIL FUMARATE
     Indication: HIV INFECTION
     Dosage: 1 DOSAGE FORM, QD
     Route: 048
     Dates: start: 201110, end: 201310
  45. VIREAD [Suspect]
     Active Substance: TENOFOVIR DISOPROXIL FUMARATE
     Indication: HIV INFECTION
     Dosage: UNK
     Route: 065
  46. FAMOTIDINE. [Concomitant]
     Active Substance: FAMOTIDINE
  47. AZITHROMYCIN ANHYDROUS. [Concomitant]
     Active Substance: AZITHROMYCIN ANHYDROUS
  48. IMIQUIMOD. [Concomitant]
     Active Substance: IMIQUIMOD
  49. PROPRANOLOL [Concomitant]
     Active Substance: PROPRANOLOL HYDROCHLORIDE
  50. ANDROGEL [Concomitant]
     Active Substance: TESTOSTERONE
  51. FUROSEMIDE. [Concomitant]
     Active Substance: FUROSEMIDE
  52. GLIPIZIDE. [Concomitant]
     Active Substance: GLIPIZIDE
  53. TRETINOIN. [Concomitant]
     Active Substance: TRETINOIN
  54. FENTANYL. [Concomitant]
     Active Substance: FENTANYL
  55. AMPICILLIN [Concomitant]
     Active Substance: AMPICILLIN
  56. ASPIRIN (E.C.) [Concomitant]
     Active Substance: ASPIRIN
  57. CORTISONE [Concomitant]
     Active Substance: CORTISONE

REACTIONS (11)
  - Renal disorder [Unknown]
  - Renal impairment [Not Recovered/Not Resolved]
  - Bone density decreased [Unknown]
  - Osteoporosis [Not Recovered/Not Resolved]
  - Emotional distress [Unknown]
  - Pain [Unknown]
  - Economic problem [Unknown]
  - Osteopenia [Not Recovered/Not Resolved]
  - Anxiety [Unknown]
  - Multiple fractures [Not Recovered/Not Resolved]
  - Anhedonia [Unknown]

NARRATIVE: CASE EVENT DATE: 201811
